FAERS Safety Report 15555565 (Version 2)
Quarter: 2019Q1

REPORT INFORMATION
  Report Type: Report from Study
  Country: FR (occurrence: FR)
  Receive Date: 20181026
  Receipt Date: 20190115
  Transmission Date: 20190417
  Serious: Yes (Hospitalization)
  Sender: FDA-Public Use
  Company Number: FR-ROCHE-2202241

PATIENT
  Age: 57 Year
  Sex: Female
  Weight: 75 kg

DRUGS (3)
  1. ATEZOLIZUMAB. [Suspect]
     Active Substance: ATEZOLIZUMAB
     Indication: B-CELL LYMPHOMA
     Dosage: LAST DOSE ON 07/SEP/2018
     Route: 065
     Dates: start: 20180515
  2. OBINUTUZUMAB. [Suspect]
     Active Substance: OBINUTUZUMAB
     Indication: B-CELL LYMPHOMA
     Dosage: LAST DOSE ON 06/SEP/2018?ON DAY 1, DAY 8 AND DAY 15 OF CYCLE 1 AND EACH DAY 1 FROM CYCLE 2 TO CYCLE
     Route: 065
     Dates: start: 20180514
  3. VENETOCLAX. [Suspect]
     Active Substance: VENETOCLAX
     Indication: B-CELL LYMPHOMA
     Dosage: 02/OCT/2018, RECENT DOSE PRIOR TO SAE
     Route: 065
     Dates: start: 20180512

REACTIONS (2)
  - Pneumonia streptococcal [Recovered/Resolved with Sequelae]
  - Enterovirus myocarditis [Recovered/Resolved]

NARRATIVE: CASE EVENT DATE: 20181002
